FAERS Safety Report 23664060 (Version 6)
Quarter: 2024Q2

REPORT INFORMATION
  Report Type: Spontaneous
  Country: JP (occurrence: None)
  Receive Date: 20240322
  Receipt Date: 20240510
  Transmission Date: 20240716
  Serious: Yes (Death)
  Sender: FDA-Public Use
  Company Number: 2024A069220

PATIENT
  Age: 59 Year
  Sex: Male
  Weight: 58 kg

DRUGS (19)
  1. IMFINZI [Suspect]
     Active Substance: DURVALUMAB
     Indication: Non-small cell lung cancer
     Dosage: DOSE UNKNOWN, EVERY FOUR WEEKS
     Route: 041
     Dates: start: 20231215, end: 20240112
  2. CARBOPLATIN [Suspect]
     Active Substance: CARBOPLATIN
     Indication: Non-small cell lung cancer
     Dates: start: 20231003, end: 20231031
  3. PACLITAXEL [Suspect]
     Active Substance: PACLITAXEL
     Indication: Non-small cell lung cancer
     Dates: start: 20231003, end: 20231031
  4. GASTER [Concomitant]
     Active Substance: FAMOTIDINE
     Route: 048
     Dates: start: 20240112, end: 20240202
  5. XYZAL [Concomitant]
     Active Substance: LEVOCETIRIZINE DIHYDROCHLORIDE
     Route: 048
     Dates: start: 20240112, end: 20240202
  6. DIHYDROCODEINE PHOSPHATE [Concomitant]
     Active Substance: DIHYDROCODEINE PHOSPHATE
     Route: 048
     Dates: start: 20230921, end: 20240202
  7. OLODATEROL HYDROCHLORIDE\TIOTROPIUM BROMIDE MONOHYDRATE [Concomitant]
     Active Substance: OLODATEROL HYDROCHLORIDE\TIOTROPIUM BROMIDE MONOHYDRATE
     Route: 055
     Dates: start: 20230906, end: 20240202
  8. MIYA-BM [Concomitant]
     Active Substance: CLOSTRIDIUM BUTYRICUM SPORES STRAIN M-55
     Route: 048
     Dates: start: 20240112
  9. LANSOPRAZOLE [Concomitant]
     Active Substance: LANSOPRAZOLE
     Dosage: PRESCRIBED BY THE PREVIOUS PHYSICIAN, AFTER BREAKFAST
     Route: 048
     Dates: end: 20240111
  10. HUSCODE [Concomitant]
     Active Substance: CHLORPHENIRAMINE MALEATE\DIHYDROCODEINE PHOSPHATE\METHYLEPHEDRINE HYDROCHLORIDE, DL-
     Dosage: PRESCRIBED BY THE PREVIOUS PHYSICIAN, AFTER BREAKFAST
     Route: 048
  11. ADONA [Concomitant]
     Dosage: PRESCRIBED BY THE REPORTING DEPARTMENT, AFTER EACH MEALS
     Route: 048
  12. TRANSAMIN [Concomitant]
     Active Substance: TRANEXAMIC ACID
     Dosage: PRESCRIBED BY THE REPORTING DEPARTMENT, AFTER EACH MEALS
     Route: 048
  13. AUGMENTIN [Concomitant]
     Active Substance: AMOXICILLIN\CLAVULANATE POTASSIUM
     Indication: Pneumonia
     Route: 048
     Dates: start: 20231013
  14. NAPROXEN SODIUM [Concomitant]
     Active Substance: NAPROXEN\NAPROXEN SODIUM
     Indication: Tumour associated fever
     Route: 048
     Dates: start: 20231014
  15. CORONAVIRUS(SARS-COV-2) RNA VACCINE [Concomitant]
     Indication: Tumour associated fever
     Route: 048
     Dates: start: 20231014
  16. CORONAVIRUS(SARS-COV-2) RNA VACCINE [Concomitant]
     Indication: Tumour associated fever
  17. CORONAVIRUS(SARS-COV-2) RNA VACCINE [Concomitant]
     Indication: Tumour associated fever
  18. CORONAVIRUS(SARS-COV-2) RNA VACCINE [Concomitant]
     Indication: Tumour associated fever
  19. CORONAVIRUS(SARS-COV-2) RNA VACCINE [Concomitant]
     Indication: Tumour associated fever

REACTIONS (5)
  - Asphyxia [Fatal]
  - Respiratory tract haemorrhage [Fatal]
  - Arterial haemorrhage [Fatal]
  - Diarrhoea [Unknown]
  - Radiation pneumonitis [Unknown]
